FAERS Safety Report 11827679 (Version 1)
Quarter: 2015Q4

REPORT INFORMATION
  Report Type: Spontaneous
  Country: US (occurrence: US)
  Receive Date: 20151211
  Receipt Date: 20151211
  Transmission Date: 20160305
  Serious: Yes (Other)
  Sender: FDA-Public Use
  Company Number: US-ENDO PHARMACEUTICALS INC.-2015-004761

PATIENT
  Age: 64 Year
  Sex: Female
  Weight: 101.7 kg

DRUGS (3)
  1. VALSTAR [Suspect]
     Active Substance: VALRUBICIN
     Dosage: 1ST CYCLE
     Route: 065
     Dates: start: 20151111, end: 20151111
  2. VALSTAR [Suspect]
     Active Substance: VALRUBICIN
     Indication: BLADDER CANCER
     Dosage: 3RD CYCLE
     Route: 065
     Dates: start: 20151125, end: 20151125
  3. VALSTAR [Suspect]
     Active Substance: VALRUBICIN
     Dosage: 2ND CYCLE
     Route: 065
     Dates: start: 20151118, end: 20151118

REACTIONS (2)
  - Drug dose omission [Recovered/Resolved]
  - Blood pressure increased [Recovered/Resolved]

NARRATIVE: CASE EVENT DATE: 20151202
